FAERS Safety Report 6241059-9 (Version None)
Quarter: 2009Q2

REPORT INFORMATION
  Report Type: 
  Country: None (occurrence: None)
  Receive Date: 20090619
  Receipt Date: 20090603
  Transmission Date: 20091009
  Serious: Yes (Other)
  Sender: FDA-Public Use
  Company Number: TPA2009A01114

PATIENT
  Age: 69 Year
  Sex: Female
  Weight: 62.1428 kg

DRUGS (11)
  1. ULORIC [Suspect]
     Indication: GOUT
     Dosage: 40 MG, 1 IN 1 D, PER ORAL
     Route: 048
     Dates: start: 20090414, end: 20090417
  2. COLCHICINE (COLCHICINE) [Concomitant]
  3. DIOVAN [Concomitant]
  4. FLEXERIL [Concomitant]
  5. LIMBREL (ALL OTHER THERAPEUTIC PRODUCTS) [Concomitant]
  6. METOPROLOL SUCCINATE [Concomitant]
  7. PLAVIX [Concomitant]
  8. PRAVACHOL [Concomitant]
  9. TYLENOL [Concomitant]
  10. VOLTAREN (DICLOFENAC DIETHYLAMINE) [Concomitant]
  11. ZEMPLAR [Concomitant]

REACTIONS (6)
  - DERMATITIS BULLOUS [None]
  - ERYTHEMA [None]
  - NECROSIS [None]
  - REFUSAL OF TREATMENT BY PATIENT [None]
  - TOXIC EPIDERMAL NECROLYSIS [None]
  - WHITE BLOOD CELL COUNT INCREASED [None]
